FAERS Safety Report 8057211-6 (Version None)
Quarter: 2012Q1

REPORT INFORMATION
  Report Type: 
  Country: None (occurrence: None)
  Receive Date: 20120119
  Receipt Date: 20120112
  Transmission Date: 20120608
  Serious: Yes (Hospitalization)
  Sender: FDA-Public Use
  Company Number: PHHY2012SE002773

PATIENT
  Sex: Male

DRUGS (9)
  1. EXELON [Suspect]
     Indication: DEMENTIA ALZHEIMER'S TYPE
     Dosage: 3 MG, DAILY
     Route: 048
     Dates: end: 20111026
  2. MOVIPREP [Concomitant]
  3. ACETAMINOPHEN [Concomitant]
  4. ZOPICLONE [Concomitant]
  5. EFFORTIL [Concomitant]
  6. PANOCOD [Concomitant]
  7. LAKTULOSE [Concomitant]
  8. MADOPARK [Concomitant]
  9. CANODERM [Concomitant]

REACTIONS (5)
  - BRADYCARDIA [None]
  - PALLOR [None]
  - DEPRESSED LEVEL OF CONSCIOUSNESS [None]
  - HYPOTENSION [None]
  - SOMNOLENCE [None]
